FAERS Safety Report 24756911 (Version 1)
Quarter: 2024Q4

REPORT INFORMATION
  Report Type: Spontaneous
  Country: US (occurrence: US)
  Receive Date: 20241220
  Receipt Date: 20241220
  Transmission Date: 20250114
  Serious: Yes (Hospitalization, Other)
  Sender: APOTEX
  Company Number: US-APOTEX-2024AP019782

PATIENT
  Age: 83 Year
  Sex: Female

DRUGS (2)
  1. METFORMIN [Suspect]
     Active Substance: METFORMIN HYDROCHLORIDE
     Indication: Product used for unknown indication
     Dosage: 1000 MILLIGRAM, QD
     Route: 048
  2. LOSARTAN [Concomitant]
     Active Substance: LOSARTAN
     Indication: Product used for unknown indication
     Dosage: 100 MILLIGRAM, QD
     Route: 048

REACTIONS (7)
  - Hyperkalaemia [Recovering/Resolving]
  - Anuria [Recovering/Resolving]
  - Renal impairment [Recovering/Resolving]
  - Toxicity to various agents [Recovering/Resolving]
  - Back pain [Recovering/Resolving]
  - Decreased appetite [Recovering/Resolving]
  - Lactic acidosis [Recovering/Resolving]
